FAERS Safety Report 7941003 (Version 2)
Quarter: 2012Q4

REPORT INFORMATION
  Report Type: Spontaneous
  Country: US (occurrence: None)
  Receive Date: 20110419
  Receipt Date: 20121115
  Transmission Date: 20130627
  Serious: Yes (Hospitalization, Other)
  Sender: FDA-Public Use
  Company Number: 2011MA003653

PATIENT
  Sex: Female
  Weight: 66.23 kg

DRUGS (1)
  1. METOCLOPRAMIDE [Suspect]
     Indication: GERD
     Dosage: 10 mg; AC and HS
     Dates: start: 20070425, end: 20091015

REACTIONS (27)
  - Tardive dyskinesia [None]
  - Extrapyramidal disorder [None]
  - Deformity [None]
  - Pain [None]
  - Nervous system disorder [None]
  - Multiple injuries [None]
  - Economic problem [None]
  - Activities of daily living impaired [None]
  - Mental disorder [None]
  - Deformity [None]
  - Urinary tract infection [None]
  - Sepsis [None]
  - Anaemia [None]
  - Asthenia [None]
  - Dementia [None]
  - Hypertension [None]
  - Myocardial infarction [None]
  - Cardiac failure congestive [None]
  - Lymphadenopathy [None]
  - Oropharyngeal pain [None]
  - Decreased appetite [None]
  - Cough [None]
  - Insomnia [None]
  - Hyperlipidaemia [None]
  - Tongue neoplasm [None]
  - Dyspnoea paroxysmal nocturnal [None]
  - Cerebral atrophy [None]
